FAERS Safety Report 9819783 (Version 1)
Quarter: 2014Q1

REPORT INFORMATION
  Report Type: Spontaneous
  Country: US (occurrence: US)
  Receive Date: 20140116
  Receipt Date: 20140116
  Transmission Date: 20141002
  Serious: Yes (Hospitalization, Other)
  Sender: FDA-Public Use
  Company Number: US-AMGEN-USASP2014002309

PATIENT
  Age: 47 Year
  Sex: Male

DRUGS (1)
  1. ENBREL [Suspect]
     Indication: PSORIASIS
     Dosage: 50 MG, QWK
     Route: 065
     Dates: start: 20131111

REACTIONS (6)
  - Brain injury [Recovered/Resolved]
  - Head injury [Unknown]
  - Laceration [Unknown]
  - Fall [Unknown]
  - Mobility decreased [Unknown]
  - Injection site bruising [Not Recovered/Not Resolved]
